FAERS Safety Report 17906790 (Version 1)
Quarter: 2020Q2

REPORT INFORMATION
  Report Type: Spontaneous
  Country: US (occurrence: US)
  Receive Date: 20200616
  Receipt Date: 20200616
  Transmission Date: 20200714
  Serious: No
  Sender: FDA-Public Use
  Company Number: US-ROCHE-2311805

PATIENT
  Sex: Female
  Weight: 72.64 kg

DRUGS (2)
  1. PREDNISONE. [Concomitant]
     Active Substance: PREDNISONE
     Dosage: ONGOING: YES
     Route: 065
  2. ACTEMRA [Suspect]
     Active Substance: TOCILIZUMAB
     Indication: TEMPORAL ARTERITIS
     Dosage: ONGOING: YES
     Route: 058
     Dates: start: 201810, end: 201904

REACTIONS (2)
  - Rash [Recovering/Resolving]
  - Syringe issue [Unknown]

NARRATIVE: CASE EVENT DATE: 2019
